FAERS Safety Report 8315812-1 (Version None)
Quarter: 2012Q2

REPORT INFORMATION
  Report Type: 
  Country: None (occurrence: None)
  Receive Date: 20120427
  Receipt Date: 20120414
  Transmission Date: 20120825
  Serious: Yes (Hospitalization, Other)
  Sender: FDA-Public Use
  Company Number: US-PAR PHARMACEUTICAL, INC-2012SCPR004334

PATIENT

DRUGS (9)
  1. TRAZODONE HCL [Suspect]
     Indication: NEGATIVISM
     Dosage: 25 MG, / DAY
     Route: 065
  2. POLYETHYLENE GLYCOL [Concomitant]
     Indication: CONSTIPATION
     Dosage: 17 G, / DAY
     Route: 065
  3. CLOZAPINE [Interacting]
     Dosage: 50 MG MORNING AND 250 MG HS
     Route: 065
  4. TRAZODONE HCL [Suspect]
     Indication: INSOMNIA
  5. FLUOXETINE [Interacting]
     Indication: INSOMNIA
  6. BISACODYL [Concomitant]
     Indication: CONSTIPATION
     Dosage: 10 MG, AS NEEDED
     Route: 054
  7. CLOZAPINE [Interacting]
     Indication: SCHIZOPHRENIA, PARANOID TYPE
     Dosage: 500 MG, / DAY
     Route: 065
  8. DOCUSATE SODIUM [Concomitant]
     Indication: CONSTIPATION
     Dosage: 200 MG, / DAY
     Route: 065
  9. FLUOXETINE [Interacting]
     Indication: NEGATIVISM
     Dosage: 40 MG, / DAY
     Route: 065

REACTIONS (5)
  - ABSCESS INTESTINAL [None]
  - ILEUS PARALYTIC [None]
  - SMALL INTESTINAL OBSTRUCTION [None]
  - INTESTINAL ISCHAEMIA [None]
  - DRUG INTERACTION [None]
